FAERS Safety Report 21627312 (Version 3)
Quarter: 2023Q1

REPORT INFORMATION
  Report Type: Spontaneous
  Country: BE (occurrence: BE)
  Receive Date: 20221122
  Receipt Date: 20230221
  Transmission Date: 20230417
  Serious: Yes (Disabling, Other)
  Sender: FDA-Public Use
  Company Number: BE-UCBSA-2022066203

PATIENT
  Sex: Male
  Weight: 82 kg

DRUGS (1)
  1. KEPPRA [Suspect]
     Active Substance: LEVETIRACETAM
     Indication: Epilepsy
     Dosage: UNK
     Route: 065
     Dates: start: 20180601

REACTIONS (3)
  - Myasthenia gravis [Unknown]
  - Diplopia [Unknown]
  - Off label use [Unknown]

NARRATIVE: CASE EVENT DATE: 20220101
